FAERS Safety Report 20611396 (Version 1)
Quarter: 2022Q1

REPORT INFORMATION
  Report Type: Spontaneous
  Country: US (occurrence: None)
  Receive Date: 20220317
  Receipt Date: 20220317
  Transmission Date: 20220424
  Serious: Yes (Other)
  Sender: FDA-Public Use
  Company Number: None

PATIENT
  Age: 34 Year
  Sex: Female
  Weight: 94.95 kg

DRUGS (2)
  1. SCOPOLAMINE [Suspect]
     Active Substance: SCOPOLAMINE
     Indication: Vertigo
     Dates: start: 20220314, end: 20220317
  2. SCOPOLAMINE [Suspect]
     Active Substance: SCOPOLAMINE
     Indication: Meniere^s disease

REACTIONS (6)
  - Tremor [None]
  - Vision blurred [None]
  - Diplopia [None]
  - Nausea [None]
  - Hallucination [None]
  - Blindness [None]

NARRATIVE: CASE EVENT DATE: 20220316
